FAERS Safety Report 5649220-9 (Version None)
Quarter: 2008Q1

REPORT INFORMATION
  Report Type: 
  Country: None (occurrence: None)
  Receive Date: 20080304
  Receipt Date: 20071205
  Transmission Date: 20080703
  Serious: No
  Sender: FDA-Public Use
  Company Number: US-BAYER-200715864NA

PATIENT
  Age: 49 Year
  Sex: Male

DRUGS (2)
  1. MAGNEVIST [Suspect]
  2. PROHANCE [Suspect]
     Dates: start: 20060106, end: 20060106

REACTIONS (1)
  - MOBILITY DECREASED [None]
